FAERS Safety Report 8791398 (Version 1)
Quarter: 2012Q4

REPORT INFORMATION
  Report Type: Spontaneous
  Country: US (occurrence: None)
  Receive Date: 20120914
  Receipt Date: 20120914
  Transmission Date: 20130627
  Serious: Yes (Other)
  Sender: FDA-Public Use
  Company Number: None

PATIENT
  Sex: Female
  Weight: 111.13 kg

DRUGS (1)
  1. FANAPT [Suspect]
     Indication: MOOD SWINGS
     Route: 048
     Dates: start: 20120822, end: 20120827

REACTIONS (4)
  - Hypoaesthesia [None]
  - Insomnia [None]
  - Restlessness [None]
  - Weight increased [None]
